FAERS Safety Report 9349690 (Version 1)
Quarter: 2013Q2

REPORT INFORMATION
  Report Type: Spontaneous
  Country: BR (occurrence: BR)
  Receive Date: 20130614
  Receipt Date: 20130614
  Transmission Date: 20140414
  Serious: Yes (Other)
  Sender: FDA-Public Use
  Company Number: BR-ABBOTT-13P-020-1102989-00

PATIENT
  Age: 34 Year
  Sex: Female
  Weight: 49 kg

DRUGS (5)
  1. HUMIRA [Suspect]
     Indication: RHEUMATOID ARTHRITIS
     Route: 058
     Dates: start: 201211, end: 201305
  2. PREDNISONE [Concomitant]
     Indication: PAIN
     Dosage: IN THE MORNING AND IN THE EVENING
     Route: 048
     Dates: start: 2011
  3. TEGRETOL [Concomitant]
     Indication: EPILEPSY
     Route: 048
  4. FRISIUM [Concomitant]
     Indication: EPILEPSY
     Route: 048
     Dates: start: 201210
  5. GARDENAL [Concomitant]
     Indication: EPILEPSY
     Route: 048
     Dates: start: 2003

REACTIONS (14)
  - Delirium [Recovered/Resolved]
  - Bacterial infection [Recovered/Resolved]
  - Weight decreased [Recovering/Resolving]
  - Joint warmth [Recovering/Resolving]
  - Arthralgia [Recovering/Resolving]
  - Joint swelling [Recovering/Resolving]
  - Rheumatoid arthritis [Recovering/Resolving]
  - Bone erosion [Recovering/Resolving]
  - Musculoskeletal stiffness [Recovering/Resolving]
  - Arthropathy [Recovering/Resolving]
  - Bone pain [Recovering/Resolving]
  - Wound [Recovered/Resolved]
  - Rheumatoid factor increased [Unknown]
  - Pyrexia [Recovered/Resolved]
